FAERS Safety Report 4517922-3 (Version None)
Quarter: 2004Q4

REPORT INFORMATION
  Report Type: 
  Country: None (occurrence: None)
  Receive Date: 20041203
  Receipt Date: 20041124
  Transmission Date: 20050328
  Serious: Yes (Hospitalization, Other)
  Sender: FDA-Public Use
  Company Number: US-MERCK-0411USA03954

PATIENT
  Sex: Female

DRUGS (2)
  1. VIOXX [Suspect]
     Indication: OSTEOARTHRITIS
     Route: 048
  2. VIOXX [Suspect]
     Route: 048

REACTIONS (8)
  - AORTIC STENOSIS [None]
  - CARDIAC DISORDER [None]
  - CARDIAC FAILURE CONGESTIVE [None]
  - CHEST PAIN [None]
  - HYPERTENSION [None]
  - LOSS OF CONSCIOUSNESS [None]
  - MITRAL VALVE INCOMPETENCE [None]
  - PERICARDIAL EFFUSION [None]
